FAERS Safety Report 7341083-9 (Version None)
Quarter: 2011Q1

REPORT INFORMATION
  Report Type: 
  Country: None (occurrence: None)
  Receive Date: 20110309
  Receipt Date: 20110301
  Transmission Date: 20110831
  Serious: Yes (Hospitalization)
  Sender: FDA-Public Use
  Company Number: A0788562A

PATIENT
  Age: 58 Year
  Sex: Male

DRUGS (8)
  1. VALSARTAN [Concomitant]
  2. GLYBURIDE AND METFORMIN HYDROCHLORIDE [Concomitant]
  3. SIMVASTATIN [Concomitant]
  4. AVANDIA [Suspect]
     Route: 048
     Dates: start: 20050101, end: 20071201
  5. CITALOPRAM HYDROBROMIDE [Concomitant]
  6. AVANDAMET [Suspect]
     Route: 065
     Dates: start: 20040801, end: 20041201
  7. CARVEDILOL [Concomitant]
  8. OMEPRAZOLE [Concomitant]

REACTIONS (3)
  - MYOCARDIAL ISCHAEMIA [None]
  - ARTERIOSCLEROSIS [None]
  - CORONARY ARTERY DISEASE [None]
